FAERS Safety Report 7824992-3 (Version None)
Quarter: 2011Q4

REPORT INFORMATION
  Report Type: 
  Country: None (occurrence: None)
  Receive Date: 20111019
  Receipt Date: 20111013
  Transmission Date: 20120403
  Serious: Yes (Hospitalization, Disabling)
  Sender: FDA-Public Use
  Company Number: US-MERCK-1102USA02324

PATIENT
  Age: 50 Year
  Sex: Female

DRUGS (4)
  1. FOSAMAX PLUS D [Suspect]
     Indication: OSTEOPENIA
     Route: 048
     Dates: start: 20000101, end: 20100201
  2. FOSAMAX [Suspect]
     Route: 048
     Dates: end: 20100201
  3. FOSAMAX [Suspect]
     Indication: OSTEOPENIA
     Route: 048
     Dates: start: 20000101, end: 20100201
  4. FOSAMAX [Suspect]
     Route: 048

REACTIONS (12)
  - IMPAIRED HEALING [None]
  - FALL [None]
  - CONTUSION [None]
  - FEMUR FRACTURE [None]
  - ANXIETY [None]
  - BREAST CALCIFICATIONS [None]
  - OSTEOPOROSIS [None]
  - OVARIAN CYST [None]
  - BONE DENSITY DECREASED [None]
  - TOOTH DISORDER [None]
  - DRUG INEFFECTIVE [None]
  - RIB FRACTURE [None]
